FAERS Safety Report 18724667 (Version 1)
Quarter: 2021Q1

REPORT INFORMATION
  Report Type: Spontaneous
  Country: US (occurrence: US)
  Receive Date: 20210111
  Receipt Date: 20210111
  Transmission Date: 20210419
  Serious: No
  Sender: FDA-Public Use
  Company Number: US-BAYER-2020-238620

PATIENT
  Sex: Male
  Weight: 99.34 kg

DRUGS (1)
  1. ALEVE [Suspect]
     Active Substance: NAPROXEN SODIUM
     Indication: OSTEOARTHRITIS
     Dosage: 1 DF, QD

REACTIONS (1)
  - Drug ineffective for unapproved indication [Unknown]
